FAERS Safety Report 23761353 (Version 2)
Quarter: 2024Q3

REPORT INFORMATION
  Report Type: Spontaneous
  Country: JP (occurrence: None)
  Receive Date: 20240419
  Receipt Date: 20240731
  Transmission Date: 20241017
  Serious: Yes (Other)
  Sender: ASTRAZENECA
  Company Number: 2024A090488

PATIENT
  Age: 55 Year
  Sex: Male

DRUGS (2)
  1. TAGRISSO [Suspect]
     Active Substance: OSIMERTINIB
     Indication: Non-small cell lung cancer
     Route: 048
     Dates: start: 20240105, end: 2024
  2. TAGRISSO [Suspect]
     Active Substance: OSIMERTINIB
     Indication: Non-small cell lung cancer
     Route: 048
     Dates: start: 20240502

REACTIONS (1)
  - Hypercreatinaemia [Recovering/Resolving]

NARRATIVE: CASE EVENT DATE: 20240403
